FAERS Safety Report 16900248 (Version 3)
Quarter: 2019Q4

REPORT INFORMATION
  Report Type: Spontaneous
  Country: US (occurrence: US)
  Receive Date: 20191009
  Receipt Date: 20191217
  Transmission Date: 20200122
  Serious: No
  Sender: FDA-Public Use
  Company Number: US-GILEAD-2019-0432314

PATIENT
  Age: 68 Year
  Sex: Female
  Weight: 100.4 kg

DRUGS (8)
  1. TYVASO [Suspect]
     Active Substance: TREPROSTINIL
     Indication: PULMONARY ARTERIAL HYPERTENSION
     Dosage: 3-9 BREATHS QID, PRIOR TO OTHER MEDS
     Route: 055
     Dates: start: 20190918
  2. NEURONTIN [Concomitant]
     Active Substance: GABAPENTIN
  3. ANTIVERT [Concomitant]
     Active Substance: MECLIZINE HYDROCHLORIDE
  4. LIPITOR [Concomitant]
     Active Substance: ATORVASTATIN CALCIUM
  5. NEXIUM I.V. [Concomitant]
     Active Substance: ESOMEPRAZOLE SODIUM
  6. KEPPRA [Concomitant]
     Active Substance: LEVETIRACETAM
  7. ALDACTONE [Concomitant]
     Active Substance: SPIRONOLACTONE
  8. AMBRISENTAN [Suspect]
     Active Substance: AMBRISENTAN
     Indication: PULMONARY ARTERIAL HYPERTENSION
     Dosage: UNK UNK, QHS
     Route: 065

REACTIONS (2)
  - Dyspnoea [Recovered/Resolved]
  - Headache [Not Recovered/Not Resolved]
